FAERS Safety Report 19950527 (Version 2)
Quarter: 2021Q4

REPORT INFORMATION
  Report Type: Spontaneous
  Country: US (occurrence: US)
  Receive Date: 20211013
  Receipt Date: 20211201
  Transmission Date: 20220303
  Serious: No
  Sender: FDA-Public Use
  Company Number: US-BAUSCH-BL-2021-034072

PATIENT
  Age: 78 Year
  Sex: Female
  Weight: 49.940 kg

DRUGS (3)
  1. ALAWAY PRESERVATIVE FREE [Suspect]
     Active Substance: KETOTIFEN FUMARATE
     Indication: Eye pruritus
     Dosage: 2-3 DROPS IN EACH EYE
     Route: 047
     Dates: start: 20210929, end: 20211007
  2. CLONAZEPAM [Concomitant]
     Active Substance: CLONAZEPAM
     Indication: Product used for unknown indication
     Route: 048
  3. NALTREXONE [Concomitant]
     Active Substance: NALTREXONE
     Indication: Product used for unknown indication
     Route: 048

REACTIONS (6)
  - Instillation site pain [Unknown]
  - Instillation site irritation [Unknown]
  - Eye pruritus [Unknown]
  - Condition aggravated [Unknown]
  - Product delivery mechanism issue [Unknown]
  - Intentional product use issue [Unknown]

NARRATIVE: CASE EVENT DATE: 20210101
